FAERS Safety Report 26098140 (Version 1)
Quarter: 2025Q4

REPORT INFORMATION
  Report Type: Spontaneous
  Country: US (occurrence: US)
  Receive Date: 20251127
  Receipt Date: 20251127
  Transmission Date: 20260117
  Serious: Yes (Hospitalization)
  Sender: OTSUKA
  Company Number: US-OTSUKA-2025_028811

PATIENT
  Age: 64 Year
  Sex: Male

DRUGS (1)
  1. BREXPIPRAZOLE [Suspect]
     Active Substance: BREXPIPRAZOLE
     Indication: Drug therapy enhancement
     Dosage: UNK
     Route: 065

REACTIONS (2)
  - Toxic encephalopathy [Unknown]
  - Akathisia [Not Recovered/Not Resolved]
